FAERS Safety Report 7016318-2 (Version None)
Quarter: 2010Q3

REPORT INFORMATION
  Report Type: 
  Country: None (occurrence: None)
  Receive Date: 20100927
  Receipt Date: 20100915
  Transmission Date: 20110219
  Serious: Yes (Death)
  Sender: FDA-Public Use
  Company Number: US-PFIZER INC-2010117110

PATIENT
  Sex: Male

DRUGS (7)
  1. XALATAN [Suspect]
     Indication: GLAUCOMA
     Dosage: 1 GTT, 1X/DAY
     Route: 047
  2. AVODART [Concomitant]
     Dosage: 0.5 MG, 1X/DAY
     Route: 048
  3. TOPROL-XL [Concomitant]
     Dosage: 50 MG, 1X/DAY
     Route: 048
  4. AMARYL [Concomitant]
     Dosage: UNK
     Route: 048
  5. PREDNISOLONE ACETATE [Concomitant]
     Dosage: 1 %, 1X/DAY
     Route: 047
  6. GLUCOPHAGE XR [Concomitant]
     Dosage: 400 MG, 4X/DAY
     Route: 048
  7. WARFARIN SODIUM [Concomitant]
     Dosage: UNK

REACTIONS (1)
  - DEATH [None]
